FAERS Safety Report 5724968-6 (Version None)
Quarter: 2008Q2

REPORT INFORMATION
  Report Type: 
  Country: None (occurrence: None)
  Receive Date: 20080501
  Receipt Date: 20080422
  Transmission Date: 20081010
  Serious: Yes (Disabling)
  Sender: FDA-Public Use
  Company Number: PL-AMGEN-UK262996

PATIENT
  Sex: Female

DRUGS (3)
  1. NEULASTA [Suspect]
     Indication: CHEMOTHERAPY
     Route: 042
     Dates: start: 20080110, end: 20080110
  2. CARBOPLATIN [Concomitant]
     Route: 042
     Dates: start: 20071202
  3. PACLITAXEL [Concomitant]
     Route: 042
     Dates: start: 20071202

REACTIONS (6)
  - ARTHRALGIA [None]
  - ASTHENIA [None]
  - BONE PAIN [None]
  - HEPATIC ENZYME INCREASED [None]
  - HYPOTONIA [None]
  - LEUKOCYTOSIS [None]
